FAERS Safety Report 5658534-8 (Version None)
Quarter: 2008Q1

REPORT INFORMATION
  Report Type: 
  Country: None (occurrence: None)
  Receive Date: 20080310
  Receipt Date: 20070413
  Transmission Date: 20080703
  Serious: No
  Sender: FDA-Public Use
  Company Number: US-BAYER-200710686BCC

PATIENT
  Age: 78 Year
  Sex: Male
  Weight: 75 kg

DRUGS (3)
  1. ALEVE [Suspect]
     Indication: BACK PAIN
     Route: 048
  2. OMEPRAZOLE [Concomitant]
  3. FLOMAX [Concomitant]

REACTIONS (1)
  - URINARY RETENTION [None]
